FAERS Safety Report 12801978 (Version 1)
Quarter: 2016Q4

REPORT INFORMATION
  Report Type: Spontaneous
  Country: US (occurrence: US)
  Receive Date: 20161003
  Receipt Date: 20161003
  Transmission Date: 20170207
  Serious: No
  Sender: FDA-Public Use
  Company Number: US-JAZZ-2016-US-012022

PATIENT
  Sex: Female

DRUGS (64)
  1. XYREM [Suspect]
     Active Substance: SODIUM OXYBATE
     Dosage: 4.5 G, BID
     Route: 048
     Dates: start: 201404
  2. HYDROCHLOROTHIAZIDE. [Concomitant]
     Active Substance: HYDROCHLOROTHIAZIDE
  3. LATISSE [Concomitant]
     Active Substance: BIMATOPROST
  4. NEXIUM [Concomitant]
     Active Substance: ESOMEPRAZOLE MAGNESIUM
  5. OXYGEN. [Concomitant]
     Active Substance: OXYGEN
  6. VITAMIN K [Concomitant]
     Active Substance: PHYTONADIONE
  7. BARIUM SULFATE [Concomitant]
     Active Substance: BARIUM SULFATE
  8. XYREM [Suspect]
     Active Substance: SODIUM OXYBATE
     Dosage: 3.5 G, THIRD DOSE
     Route: 048
     Dates: start: 200910, end: 2011
  9. TRIAMCINOLONE [Concomitant]
     Active Substance: TRIAMCINOLONE
  10. XYREM [Suspect]
     Active Substance: SODIUM OXYBATE
     Indication: NARCOLEPSY
     Dosage: 3 G, BID
     Route: 048
     Dates: start: 200505, end: 200610
  11. BACTRIM [Suspect]
     Active Substance: SULFAMETHOXAZOLE\TRIMETHOPRIM
     Indication: PRODUCT USED FOR UNKNOWN INDICATION
  12. LAMISIL [Concomitant]
     Active Substance: TERBINAFINE HYDROCHLORIDE
  13. OPANA [Concomitant]
     Active Substance: OXYMORPHONE HYDROCHLORIDE
  14. PRAMIPEXOLE. [Concomitant]
     Active Substance: PRAMIPEXOLE
  15. VITAMIN D3 [Concomitant]
     Active Substance: CHOLECALCIFEROL
  16. DETROL LA [Concomitant]
     Active Substance: TOLTERODINE TARTRATE
  17. EVOXAC [Concomitant]
     Active Substance: CEVIMELINE HYDROCHLORIDE
  18. ONE DAILY FOR WOMAN [Concomitant]
  19. VIACTIV MULTI VITAMIN [Concomitant]
  20. IPRATROPIUM BROMIDE. [Concomitant]
     Active Substance: IPRATROPIUM BROMIDE
  21. LYRICA [Concomitant]
     Active Substance: PREGABALIN
  22. VOLTAREN [Concomitant]
     Active Substance: DICLOFENAC SODIUM
  23. LIDOCAINE. [Concomitant]
     Active Substance: LIDOCAINE
  24. OPSUMIT [Concomitant]
     Active Substance: MACITENTAN
  25. STOOL SOFTENER (DOCUSATE CALCIUM) [Concomitant]
     Active Substance: DOCUSATE CALCIUM
  26. AMRIX [Concomitant]
     Active Substance: CYCLOBENZAPRINE HYDROCHLORIDE
  27. XYREM [Suspect]
     Active Substance: SODIUM OXYBATE
     Dosage: DOSE ADJUSTMENT
     Dates: start: 201205, end: 201404
  28. RECLAST [Concomitant]
     Active Substance: ZOLEDRONIC ACID
  29. FLUOROMETHOLONE. [Concomitant]
     Active Substance: FLUOROMETHOLONE
  30. FOLIC ACID. [Concomitant]
     Active Substance: FOLIC ACID
  31. HYDROXYZINE HCL [Concomitant]
     Active Substance: HYDROXYZINE HYDROCHLORIDE
  32. SPIRONOLACTONE. [Concomitant]
     Active Substance: SPIRONOLACTONE
  33. XYREM [Suspect]
     Active Substance: SODIUM OXYBATE
     Dosage: 5 G FIRST DOSE
     Route: 048
     Dates: start: 200910, end: 2011
  34. XYREM [Suspect]
     Active Substance: SODIUM OXYBATE
     Dosage: 3.5 G, SECOND DOSE
     Dates: start: 200910, end: 2011
  35. XYREM [Suspect]
     Active Substance: SODIUM OXYBATE
     Dosage: 3.5 G, THIRD DOSE
     Route: 048
     Dates: start: 201202, end: 201203
  36. CRESTOR [Suspect]
     Active Substance: ROSUVASTATIN CALCIUM
     Indication: PRODUCT USED FOR UNKNOWN INDICATION
     Dosage: UNK
     Dates: start: 20160301
  37. PREDNISONE. [Concomitant]
     Active Substance: PREDNISONE
  38. ASPIRIN. [Concomitant]
     Active Substance: ASPIRIN
  39. CELEBREX [Concomitant]
     Active Substance: CELECOXIB
  40. OXYCODONE HYDROCHLORIDE. [Concomitant]
     Active Substance: OXYCODONE HYDROCHLORIDE
  41. XYREM [Suspect]
     Active Substance: SODIUM OXYBATE
     Dosage: DOSE ADJUSTMENTS
     Route: 048
     Dates: start: 200610, end: 200910
  42. XYREM [Suspect]
     Active Substance: SODIUM OXYBATE
     Dosage: 5 G, FIRST DOSE
     Route: 048
     Dates: start: 201202, end: 201203
  43. XYREM [Suspect]
     Active Substance: SODIUM OXYBATE
     Dosage: 3 G, BID
     Route: 048
     Dates: start: 201203, end: 201205
  44. MIRALAX [Concomitant]
     Active Substance: POLYETHYLENE GLYCOL 3350
  45. SIMVASTATIN. [Concomitant]
     Active Substance: SIMVASTATIN
  46. ADDERALL XR [Concomitant]
     Active Substance: AMPHETAMINE ASPARTATE\AMPHETAMINE SULFATE\DEXTROAMPHETAMINE SACCHARATE\DEXTROAMPHETAMINE SULFATE
  47. CYMBALTA [Concomitant]
     Active Substance: DULOXETINE HYDROCHLORIDE
  48. PERCOCET [Concomitant]
     Active Substance: ACETAMINOPHEN\OXYCODONE HYDROCHLORIDE
  49. TOPAMAX [Concomitant]
     Active Substance: TOPIRAMATE
  50. TOVIAZ [Concomitant]
     Active Substance: FESOTERODINE FUMARATE
  51. OXYCONTIN [Concomitant]
     Active Substance: OXYCODONE HYDROCHLORIDE
  52. CLOTRIMAZOLE. [Concomitant]
     Active Substance: CLOTRIMAZOLE
  53. LABETALOL HCL [Concomitant]
     Active Substance: LABETALOL HYDROCHLORIDE
  54. XYREM [Suspect]
     Active Substance: SODIUM OXYBATE
     Dosage: 3.5 G, SECOND DOSE
     Route: 048
     Dates: start: 201202, end: 201203
  55. FORTEO [Concomitant]
     Active Substance: TERIPARATIDE
  56. METAMUCIL [Concomitant]
     Active Substance: PLANTAGO SEED
  57. MOVANTIK [Concomitant]
     Active Substance: NALOXEGOL OXALATE
  58. CLONIDINE HCL [Concomitant]
     Active Substance: CLONIDINE HYDROCHLORIDE
  59. FERROUS FUMARATE 324 [Concomitant]
  60. FLUTICASONE PROPIONATE. [Concomitant]
     Active Substance: FLUTICASONE PROPIONATE
  61. VIACTIV [Concomitant]
     Active Substance: CALCIUM\VITAMIN D\VITAMIN K5
  62. POTASSIUM CL [Concomitant]
     Active Substance: POTASSIUM CHLORIDE
  63. ZOFRAN [Concomitant]
     Active Substance: ONDANSETRON HYDROCHLORIDE
  64. DILAUDID [Concomitant]
     Active Substance: HYDROMORPHONE HYDROCHLORIDE

REACTIONS (1)
  - Drug hypersensitivity [Not Recovered/Not Resolved]
